FAERS Safety Report 7685500-3 (Version None)
Quarter: 2011Q3

REPORT INFORMATION
  Report Type: 
  Country: None (occurrence: None)
  Receive Date: 20110816
  Receipt Date: 20110802
  Transmission Date: 20111222
  Serious: Yes (Hospitalization, Other)
  Sender: FDA-Public Use
  Company Number: ES-ELI_LILLY_AND_COMPANY-ES201108000910

PATIENT
  Sex: Female

DRUGS (6)
  1. FORTEO [Suspect]
     Indication: OSTEOPOROSIS
     Dosage: 20 UG, QD
     Route: 058
     Dates: start: 20110626
  2. RAMIPRIL [Concomitant]
     Indication: HYPERTENSION
     Dosage: UNK
     Route: 048
  3. FORTEO [Suspect]
     Dosage: 20 UG, QD
     Route: 058
     Dates: start: 20110802
  4. BESITRAN [Concomitant]
     Indication: HYPERTENSION
     Dosage: UNK
     Route: 048
  5. SINTROM [Concomitant]
     Indication: ARRHYTHMIA
     Dosage: UNK, PRN
     Route: 048
     Dates: start: 20100101
  6. SIMVASTATINA [Concomitant]
     Indication: BLOOD CHOLESTEROL
     Dosage: UNK
     Route: 048

REACTIONS (4)
  - FEELING ABNORMAL [None]
  - DEVICE MALFUNCTION [None]
  - TACHYCARDIA [None]
  - ARRHYTHMIA [None]
